FAERS Safety Report 4339185-4 (Version None)
Quarter: 2004Q2

REPORT INFORMATION
  Report Type: 
  Country: None (occurrence: None)
  Receive Date: 20040412
  Receipt Date: 20040330
  Transmission Date: 20050107
  Serious: Yes (Hospitalization)
  Sender: FDA-Public Use
  Company Number: 163-20785-04010796

PATIENT
  Age: 76 Year
  Sex: Female

DRUGS (3)
  1. THALOMID [Suspect]
     Indication: MYELODYSPLASTIC SYNDROME
     Dosage: 100 MG, QD, ORAL;  50 MG, QD, ORAL
     Route: 048
     Dates: start: 20030821, end: 20030925
  2. THALOMID [Suspect]
     Indication: MYELODYSPLASTIC SYNDROME
     Dosage: 100 MG, QD, ORAL;  50 MG, QD, ORAL
     Route: 048
     Dates: start: 20030926, end: 20030930
  3. ACETYLSALICYLIC ACID SRT [Concomitant]

REACTIONS (5)
  - DYSPNOEA [None]
  - HAEMATURIA [None]
  - HAEMOGLOBIN DECREASED [None]
  - MEMORY IMPAIRMENT [None]
  - PLATELET DISORDER [None]
